FAERS Safety Report 17497146 (Version 2)
Quarter: 2020Q1

REPORT INFORMATION
  Report Type: Spontaneous
  Country: FR (occurrence: FR)
  Receive Date: 20200304
  Receipt Date: 20200312
  Transmission Date: 20200409
  Serious: Yes (Other)
  Sender: FDA-Public Use
  Company Number: FR-PFIZER INC-2020093208

PATIENT
  Age: 67 Year
  Sex: Female
  Weight: 45 kg

DRUGS (7)
  1. METHYLPREDNISOLONE. [Suspect]
     Active Substance: METHYLPREDNISOLONE
     Indication: NEUROENDOCRINE TUMOUR
     Dosage: 40 MG, UNK (IN 30 MINUTES)
     Route: 065
     Dates: start: 201702
  2. LANREOTIDE [Suspect]
     Active Substance: LANREOTIDE
     Indication: NEUROENDOCRINE TUMOUR
     Dosage: 120 MG, UNK
     Route: 065
     Dates: start: 201702
  3. PRIMENE [Suspect]
     Active Substance: ALANINE\ARGININE\ASPARTIC ACID\CYSTEINE\GLUTAMIC ACID\GLYCINE\HISTIDINE\ISOLEUCINE\LEUCINE\LYSINE\METHIONINE\ORNITHINE HYDROCHLORIDE\PHENYLALANINE\PROLINE\SERINE\TAURINE\THREONINE\TRYPTOPHAN\TYROSINE\VALINE
     Indication: NEUROENDOCRINE TUMOUR
     Dosage: 350 ML, UNK (EVERY 1-HOUR 350ML/H IN 6H)
     Route: 065
     Dates: start: 201702
  4. LU(177)-DOTATOC [Suspect]
     Active Substance: EDOTREOTIDE\LUTETIUM LU-177
     Indication: NEUROENDOCRINE TUMOUR
     Dosage: UNK, 7.255 GIGABECQUEREL, (30 MINUTES)
     Route: 065
     Dates: start: 201702
  5. METOCLOPRAMIDE. [Suspect]
     Active Substance: METOCLOPRAMIDE
     Indication: VOMITING
     Dosage: UNK
     Route: 065
     Dates: start: 202002
  6. ONDANSETRON [Suspect]
     Active Substance: ONDANSETRON
     Indication: NEUROENDOCRINE TUMOUR
     Dosage: 8 MG, UNK
     Route: 065
     Dates: start: 201702
  7. DEXCHLORPHENIRAMINE [Suspect]
     Active Substance: DEXCHLORPHENIRAMINE
     Indication: NEUROENDOCRINE TUMOUR
     Dosage: 5 MG, UNK
     Route: 065
     Dates: start: 201702

REACTIONS (6)
  - Aminoaciduria [Recovered/Resolved]
  - Muscle spasms [Recovered/Resolved]
  - Proteinuria [Recovered/Resolved]
  - Off label use [Unknown]
  - Product use in unapproved indication [Unknown]
  - Metabolic acidosis [Recovered/Resolved]

NARRATIVE: CASE EVENT DATE: 201702
